FAERS Safety Report 9969937 (Version 1)
Quarter: 2014Q1

REPORT INFORMATION
  Report Type: Spontaneous
  Country: US (occurrence: None)
  Receive Date: 20140305
  Receipt Date: 20140305
  Transmission Date: 20141002
  Serious: Yes (Death)
  Sender: FDA-Public Use
  Company Number: None

PATIENT
  Age: 90 Year
  Sex: Male

DRUGS (2)
  1. ZYTIGA 250MG [Suspect]
     Indication: PROSTATE CANCER
     Route: 048
     Dates: start: 20121102, end: 20140217
  2. PREDNISONE 5MG [Suspect]
     Indication: PROSTATE CANCER
     Route: 048
     Dates: start: 20121102, end: 20140217

REACTIONS (1)
  - Death [None]
